FAERS Safety Report 5338407-0 (Version None)
Quarter: 2007Q2

REPORT INFORMATION
  Report Type: 
  Country: None (occurrence: None)
  Receive Date: 20070530
  Receipt Date: 20070523
  Transmission Date: 20071010
  Serious: Yes (Hospitalization)
  Sender: FDA-Public Use
  Company Number: US-ELI_LILLY_AND_COMPANY-US200705000779

PATIENT
  Age: 59 Year
  Sex: Female

DRUGS (5)
  1. BYETTA [Suspect]
     Indication: GLUCOSE TOLERANCE IMPAIRED
     Dosage: 5 UG, 2/D
     Route: 058
     Dates: start: 20070402
  2. EVISTA [Concomitant]
     Indication: HORMONE REPLACEMENT THERAPY
     Dosage: 60 MG, DAILY (1/D)
     Route: 048
  3. LIPITOR [Concomitant]
     Indication: BLOOD CHOLESTEROL
     Dosage: 2 MG, DAILY (1/D)
     Route: 048
  4. ALLEGRA [Concomitant]
     Indication: HYPERSENSITIVITY
     Dosage: 60 MG, DAILY (1/D)
     Route: 048
  5. MOTRIN [Concomitant]
     Dosage: 800 MBQ, 3/D

REACTIONS (7)
  - BLOOD GLUCOSE INCREASED [None]
  - BLOOD POTASSIUM DECREASED [None]
  - HEADACHE [None]
  - INJECTION SITE BRUISING [None]
  - MUSCULOSKELETAL DISCOMFORT [None]
  - PYELONEPHRITIS [None]
  - WEIGHT DECREASED [None]
